FAERS Safety Report 8444512-2 (Version None)
Quarter: 2012Q2

REPORT INFORMATION
  Report Type: 
  Country: None (occurrence: None)
  Receive Date: 20120618
  Receipt Date: 20120604
  Transmission Date: 20120825
  Serious: Yes (Other)
  Sender: FDA-Public Use
  Company Number: DE-BAYER-2012-057215

PATIENT
  Age: 66 Year
  Sex: Female

DRUGS (5)
  1. HYDROXYUREA [Concomitant]
     Dosage: UNK
     Dates: start: 20060512, end: 20060622
  2. ANAGRELIDE HYDROCHLORIDE [Suspect]
     Indication: MYELOPROLIFERATIVE DISORDER
     Dosage: 0.5MG DAILY DOSE
     Route: 048
     Dates: start: 20060626, end: 20060704
  3. FLUOXETINE HCL [Concomitant]
  4. ANAGRELIDE HYDROCHLORIDE [Suspect]
     Dosage: 1MG DAILY DOSE
     Route: 048
     Dates: start: 20060704, end: 20060711
  5. ASPIRIN [Suspect]
     Dosage: 100MG DAILY DOSE
     Route: 065
     Dates: start: 20060301, end: 20060622

REACTIONS (6)
  - GASTROINTESTINAL ULCER [None]
  - GASTROINTESTINAL HAEMORRHAGE [None]
  - HAEMORRHAGE [None]
  - GASTROINTESTINAL OBSTRUCTION [None]
  - MALLORY-WEISS SYNDROME [None]
  - GASTROINTESTINAL PERFORATION [None]
